FAERS Safety Report 7377557-4 (Version None)
Quarter: 2011Q1

REPORT INFORMATION
  Report Type: 
  Country: None (occurrence: None)
  Receive Date: 20110328
  Receipt Date: 20110130
  Transmission Date: 20110831
  Serious: Yes (Other)
  Sender: FDA-Public Use
  Company Number: DE-RANBAXY-2011RR-40993

PATIENT

DRUGS (1)
  1. CLARITHROMYCIN BASICS 250MG FILMTABLETTEN [Suspect]
     Indication: BRONCHITIS
     Dosage: 250 MG, BID
     Dates: start: 20101217, end: 20101218

REACTIONS (1)
  - EPISTAXIS [None]
